FAERS Safety Report 8226025-6 (Version None)
Quarter: 2012Q1

REPORT INFORMATION
  Report Type: 
  Country: None (occurrence: None)
  Receive Date: 20120321
  Receipt Date: 20120315
  Transmission Date: 20120608
  Serious: No
  Sender: FDA-Public Use
  Company Number: US-PFIZER INC-2012069862

PATIENT
  Sex: Female

DRUGS (1)
  1. EFFEXOR XR [Suspect]
     Dosage: 37.5 MG, TWO EVERY MORNING

REACTIONS (3)
  - DRUG INEFFECTIVE [None]
  - MALAISE [None]
  - FEELING ABNORMAL [None]
